FAERS Safety Report 5324360-2 (Version None)
Quarter: 2007Q2

REPORT INFORMATION
  Report Type: 
  Country: None (occurrence: None)
  Receive Date: 20070509
  Receipt Date: 20070502
  Transmission Date: 20071010
  Serious: Yes (Disabling)
  Sender: FDA-Public Use
  Company Number: S07-FRA-01664-01

PATIENT
  Age: 69 Year
  Sex: Male

DRUGS (10)
  1. AOTAL (ACAMPROSATE) [Suspect]
     Indication: ALCOHOLISM
     Dates: start: 20060301, end: 20070316
  2. ALDALIX [Suspect]
     Dates: end: 20070215
  3. DI-ANTALVIC [Concomitant]
  4. ZOPLICLONE [Concomitant]
  5. CLONAZEPAM [Concomitant]
  6. FUROSEMIDE [Concomitant]
  7. XATRAL (ALFUZOSIN) [Concomitant]
  8. ATARAX [Concomitant]
  9. EUPRESSYL (URAPIDIL) [Concomitant]
  10. COZAAR [Concomitant]

REACTIONS (6)
  - BLOOD LUTEINISING HORMONE INCREASED [None]
  - CUSHING'S SYNDROME [None]
  - DYSPNOEA [None]
  - GYNAECOMASTIA [None]
  - OESTRADIOL INCREASED [None]
  - WEIGHT INCREASED [None]
